FAERS Safety Report 18200086 (Version 5)
Quarter: 2020Q4

REPORT INFORMATION
  Report Type: Spontaneous
  Country: US (occurrence: US)
  Receive Date: 20200826
  Receipt Date: 20201106
  Transmission Date: 20210113
  Serious: Yes (Hospitalization, Other)
  Sender: FDA-Public Use
  Company Number: US-BIOMARINAP-US-2020-131883

PATIENT
  Age: 2 Month
  Sex: Female
  Weight: 6.1 kg

DRUGS (7)
  1. ACETAMINOPHEN. [Concomitant]
     Active Substance: ACETAMINOPHEN
     Indication: PREMEDICATION
  2. ALDURAZYME [Suspect]
     Active Substance: LARONIDASE
     Indication: MUCOPOLYSACCHARIDOSIS I
     Dosage: 2.9 MILLIGRAM, QW
     Route: 041
     Dates: start: 20200717
  3. ALDURAZYME [Suspect]
     Active Substance: LARONIDASE
     Dosage: 3.48 UNK
     Route: 041
     Dates: start: 20200814
  4. ALDURAZYME [Suspect]
     Active Substance: LARONIDASE
     Dosage: 3.48 UNK
     Route: 041
     Dates: start: 20200807, end: 202008
  5. NACL [Concomitant]
     Active Substance: SODIUM CHLORIDE
     Indication: PRODUCT USED FOR UNKNOWN INDICATION
     Dosage: 100 MILLILITER
     Route: 041
     Dates: start: 20200807
  6. NACL [Concomitant]
     Active Substance: SODIUM CHLORIDE
     Dosage: 100 MILLILITER
     Route: 041
     Dates: start: 20200814
  7. DIPHENHYDRAMINE. [Concomitant]
     Active Substance: DIPHENHYDRAMINE
     Indication: PREMEDICATION

REACTIONS (3)
  - Rash [Recovered/Resolved]
  - Sepsis [Unknown]
  - Vascular device infection [Unknown]

NARRATIVE: CASE EVENT DATE: 20200807
